FAERS Safety Report 4771793-9 (Version None)
Quarter: 2005Q3

REPORT INFORMATION
  Report Type: 
  Country: None (occurrence: None)
  Receive Date: 20050916
  Receipt Date: 20050907
  Transmission Date: 20060218
  Serious: Yes (Death, Hospitalization)
  Sender: FDA-Public Use
  Company Number: US-JNJFOC-20050902406

PATIENT
  Age: 44 Year
  Sex: Female

DRUGS (1)
  1. FENTANYL [Suspect]
     Indication: INTENTIONAL MISUSE
     Route: 048

REACTIONS (5)
  - ANOXIC ENCEPHALOPATHY [None]
  - APNOEA [None]
  - CARDIAC ARREST [None]
  - MYOCLONUS [None]
  - SIMPLE PARTIAL SEIZURES [None]
